FAERS Safety Report 8536223-X (Version None)
Quarter: 2012Q3

REPORT INFORMATION
  Report Type: 
  Country: None (occurrence: None)
  Receive Date: 20120725
  Receipt Date: 20120716
  Transmission Date: 20120928
  Serious: Yes (Other)
  Sender: FDA-Public Use
  Company Number: US-JNJFOC-20120709535

PATIENT
  Sex: Female

DRUGS (4)
  1. TYLENOL [Suspect]
     Indication: UPPER RESPIRATORY TRACT INFECTION
     Route: 065
  2. NYQUIL [Suspect]
     Indication: UPPER RESPIRATORY TRACT INFECTION
     Route: 065
  3. TYLENOL [Suspect]
     Route: 065
  4. THERAFLU [Suspect]
     Indication: UPPER RESPIRATORY TRACT INFECTION
     Route: 065

REACTIONS (6)
  - ACUTE HEPATIC FAILURE [None]
  - POSTERIOR REVERSIBLE ENCEPHALOPATHY SYNDROME [None]
  - RENAL FAILURE ACUTE [None]
  - COAGULOPATHY [None]
  - CHOLECYSTITIS [None]
  - HALLUCINATION [None]
